FAERS Safety Report 9605823 (Version 1)
Quarter: 2013Q4

REPORT INFORMATION
  Report Type: Spontaneous
  Country: US (occurrence: US)
  Receive Date: 20131008
  Receipt Date: 20131008
  Transmission Date: 20140711
  Serious: No
  Sender: FDA-Public Use
  Company Number: US-AMGEN-USASP2013061504

PATIENT
  Age: 81 Year
  Sex: Male
  Weight: 80 kg

DRUGS (2)
  1. XGEVA [Suspect]
     Indication: PRODUCT USED FOR UNKNOWN INDICATION
     Dosage: 120 UNK, Q28D
     Route: 058
     Dates: start: 20130125
  2. DOCETAXEL [Concomitant]
     Indication: PROSTATE CANCER
     Dosage: 150 UNK, Q21
     Route: 042
     Dates: start: 20130724

REACTIONS (1)
  - Hypophosphataemia [Not Recovered/Not Resolved]
